FAERS Safety Report 21232848 (Version 4)
Quarter: 2022Q4

REPORT INFORMATION
  Report Type: Spontaneous
  Country: ES (occurrence: ES)
  Receive Date: 20220819
  Receipt Date: 20221025
  Transmission Date: 20230113
  Serious: Yes (Hospitalization)
  Sender: FDA-Public Use
  Company Number: ES-NOVOPROD-946659

PATIENT
  Age: 15 Year
  Sex: Male
  Weight: 55 kg

DRUGS (13)
  1. NOVOSEVEN [Suspect]
     Active Substance: COAGULATION FACTOR VIIA RECOMBINANT HUMAN
     Dosage: 90 ?G, BID
     Route: 042
     Dates: start: 20220718, end: 20220722
  2. NOVOSEVEN [Suspect]
     Active Substance: COAGULATION FACTOR VIIA RECOMBINANT HUMAN
     Dosage: 90 MCG 13 HOURLY
     Route: 042
     Dates: start: 20220722, end: 20220723
  3. NOVOSEVEN [Suspect]
     Active Substance: COAGULATION FACTOR VIIA RECOMBINANT HUMAN
     Dosage: 90 MCG 14 HOURLY
     Route: 042
     Dates: start: 20220723, end: 20220725
  4. NOVOSEVEN [Suspect]
     Active Substance: COAGULATION FACTOR VIIA RECOMBINANT HUMAN
     Dosage: 90 MCG 16 HOURLY
     Route: 042
     Dates: start: 20220725, end: 20220726
  5. NOVOSEVEN [Suspect]
     Active Substance: COAGULATION FACTOR VIIA RECOMBINANT HUMAN
     Dosage: 90 MCG 14 HOURLY
     Route: 042
     Dates: start: 20220726, end: 20220729
  6. NOVOSEVEN [Suspect]
     Active Substance: COAGULATION FACTOR VIIA RECOMBINANT HUMAN
     Dosage: 90 MCG 16 HOURLY
     Route: 042
     Dates: start: 20220729, end: 20220731
  7. NOVOSEVEN [Suspect]
     Active Substance: COAGULATION FACTOR VIIA RECOMBINANT HUMAN
     Indication: Factor IX deficiency
     Dosage: 5 MG (EVERY 2 HOURS)
     Route: 042
     Dates: start: 20220716
  8. NOVOSEVEN [Suspect]
     Active Substance: COAGULATION FACTOR VIIA RECOMBINANT HUMAN
     Dosage: 118 MCG 14 HOURLY
     Route: 042
     Dates: start: 20220802, end: 20220808
  9. NOVOSEVEN [Suspect]
     Active Substance: COAGULATION FACTOR VIIA RECOMBINANT HUMAN
     Dosage: 118 MCG 16 HOURLY
     Route: 042
     Dates: start: 20220808, end: 20220810
  10. NOVOSEVEN [Suspect]
     Active Substance: COAGULATION FACTOR VIIA RECOMBINANT HUMAN
     Dosage: 118 ?G, TID
     Route: 042
     Dates: start: 20220810, end: 20220817
  11. NOVOSEVEN [Suspect]
     Active Substance: COAGULATION FACTOR VIIA RECOMBINANT HUMAN
     Dosage: 118 ?G, BID
     Route: 042
     Dates: start: 20220817
  12. NOVOSEVEN [Suspect]
     Active Substance: COAGULATION FACTOR VIIA RECOMBINANT HUMAN
     Dosage: 5 MG EVERY 12 HOURS
     Route: 042
  13. NOVOSEVEN [Suspect]
     Active Substance: COAGULATION FACTOR VIIA RECOMBINANT HUMAN
     Dosage: 90 MCG 14 HOURLY
     Route: 042
     Dates: start: 20220731, end: 20220802

REACTIONS (9)
  - Muscle haemorrhage [Recovered/Resolved]
  - Haemarthrosis [Recovering/Resolving]
  - Haemarthrosis [Recovered/Resolved]
  - Anaemia [Recovered/Resolved]
  - Abdominal pain [Recovered/Resolved]
  - Diarrhoea [Recovered/Resolved]
  - Dizziness [Not Recovered/Not Resolved]
  - Infusion related reaction [Recovered/Resolved]
  - Pyrexia [Recovered/Resolved]

NARRATIVE: CASE EVENT DATE: 20220716
